FAERS Safety Report 9914489 (Version 1)
Quarter: 2014Q1

REPORT INFORMATION
  Report Type: Spontaneous
  Country: US (occurrence: US)
  Receive Date: 20140220
  Receipt Date: 20140220
  Transmission Date: 20141002
  Serious: No
  Sender: FDA-Public Use
  Company Number: US-TARO-2013P1008619

PATIENT
  Sex: Female

DRUGS (1)
  1. CLOMIPRAMINE HYDROCHLORIDE [Suspect]
     Dates: start: 201306

REACTIONS (2)
  - Mydriasis [Not Recovered/Not Resolved]
  - Staring [Unknown]
